FAERS Safety Report 11340608 (Version 1)
Quarter: 2015Q3

REPORT INFORMATION
  Report Type: Report from Study
  Country: US (occurrence: US)
  Receive Date: 20150805
  Receipt Date: 20150805
  Transmission Date: 20151125
  Serious: Yes (Other)
  Sender: FDA-Public Use
  Company Number: US-BAYER-2015-382569

PATIENT
  Sex: Female

DRUGS (1)
  1. STIVARGA [Suspect]
     Active Substance: REGORAFENIB
     Indication: GASTROINTESTINAL STROMAL CANCER

REACTIONS (6)
  - Liver function test abnormal [None]
  - Hypertension [None]
  - Intestinal perforation [None]
  - Intestinal haemorrhage [None]
  - Haemoglobin decreased [None]
  - Ulcer [None]
